FAERS Safety Report 22673691 (Version 2)
Quarter: 2024Q1

REPORT INFORMATION
  Report Type: Spontaneous
  Country: IN (occurrence: IN)
  Receive Date: 20230705
  Receipt Date: 20240327
  Transmission Date: 20240410
  Serious: Yes (Death, Life-Threatening, Hospitalization, Other)
  Sender: FDA-Public Use
  Company Number: IN-MLMSERVICE-20230616-4353653-1

PATIENT

DRUGS (3)
  1. CYCLOPHOSPHAMIDE [Suspect]
     Active Substance: CYCLOPHOSPHAMIDE
     Indication: Plasma cell myeloma
     Dosage: UNK
     Route: 065
  2. DEXAMETHASONE [Suspect]
     Active Substance: DEXAMETHASONE
     Indication: Plasma cell myeloma
     Dosage: UNK
     Route: 065
  3. BORTEZOMIB [Suspect]
     Active Substance: BORTEZOMIB
     Indication: Plasma cell myeloma
     Dosage: UNK
     Route: 065

REACTIONS (9)
  - Nephropathy [Fatal]
  - Renal artery arteriosclerosis [Fatal]
  - Thrombotic microangiopathy [Fatal]
  - Cardiac infection [Fatal]
  - Systemic candida [Fatal]
  - Kidney infection [Fatal]
  - Respiratory moniliasis [Fatal]
  - Bronchopulmonary aspergillosis [Fatal]
  - Pneumonia influenzal [Fatal]
